FAERS Safety Report 11301148 (Version 2)
Quarter: 2015Q3

REPORT INFORMATION
  Report Type: Spontaneous
  Country: US (occurrence: None)
  Receive Date: 20150722
  Receipt Date: 20150810
  Transmission Date: 20151125
  Serious: Yes (Hospitalization)
  Sender: FDA-Public Use
  Company Number: DEP_03185_2015

PATIENT
  Age: 57 Year
  Sex: Female
  Weight: 94.8 kg

DRUGS (7)
  1. GRALISE [Suspect]
     Active Substance: GABAPENTIN
     Indication: SEIZURE
     Route: 048
     Dates: start: 2014
  2. ZONISAMIDE. [Concomitant]
     Active Substance: ZONISAMIDE
  3. TEGRETOL [Concomitant]
     Active Substance: CARBAMAZEPINE
  4. BIDIL [Concomitant]
     Active Substance: HYDRALAZINE HYDROCHLORIDE\ISOSORBIDE DINITRATE
  5. GRALISE [Suspect]
     Active Substance: GABAPENTIN
     Indication: OFF LABEL USE
     Route: 048
     Dates: start: 2014
  6. TROKENDI [Concomitant]
     Active Substance: TOPIRAMATE
  7. DEPAKOTE [Concomitant]
     Active Substance: DIVALPROEX SODIUM

REACTIONS (4)
  - Tremor [None]
  - Gait disturbance [None]
  - Balance disorder [None]
  - Seizure [None]

NARRATIVE: CASE EVENT DATE: 2014
